FAERS Safety Report 21367743 (Version 1)
Quarter: 2022Q3

REPORT INFORMATION
  Report Type: Spontaneous
  Country: US (occurrence: US)
  Receive Date: 20220923
  Receipt Date: 20220923
  Transmission Date: 20221027
  Serious: No
  Sender: FDA-Public Use
  Company Number: US-PURDUE-USA-2021-0286958

PATIENT
  Age: 65 Year
  Sex: Female

DRUGS (1)
  1. ACETAMINOPHEN\OXYCODONE HYDROCHLORIDE [Suspect]
     Active Substance: ACETAMINOPHEN\OXYCODONE HYDROCHLORIDE
     Indication: Pain
     Dosage: 10/325 MG, Q4H PRN
     Route: 048

REACTIONS (4)
  - Inadequate analgesia [Not Recovered/Not Resolved]
  - Product colour issue [Unknown]
  - Product taste abnormal [Unknown]
  - Product physical issue [Unknown]

NARRATIVE: CASE EVENT DATE: 20211011
